FAERS Safety Report 5819718-9 (Version None)
Quarter: 2008Q3

REPORT INFORMATION
  Report Type: 
  Country: None (occurrence: None)
  Receive Date: 20080717
  Receipt Date: 20080710
  Transmission Date: 20090109
  Serious: Yes (Hospitalization)
  Sender: FDA-Public Use
  Company Number: 14804

PATIENT
  Age: 50 Year
  Sex: Male

DRUGS (7)
  1. METOPROLOL SUCCINATE [Suspect]
     Indication: HYPERTENSION
     Dosage: 75 MG DAILY ORAL
     Route: 048
     Dates: start: 20080630, end: 20080706
  2. ALLOPURINOL [Concomitant]
  3. VALIUM [Concomitant]
  4. ASPIRIN [Concomitant]
  5. ZANTAC [Concomitant]
  6. CENTRUM [Concomitant]
  7. RAMIPRIL [Concomitant]

REACTIONS (7)
  - BRADYCARDIA [None]
  - CONFUSIONAL STATE [None]
  - DIZZINESS [None]
  - FEELING ABNORMAL [None]
  - ORTHOSTATIC HYPOTENSION [None]
  - PERIPHERAL COLDNESS [None]
  - THERAPEUTIC RESPONSE UNEXPECTED WITH DRUG SUBSTITUTION [None]
